FAERS Safety Report 19899833 (Version 1)
Quarter: 2021Q3

REPORT INFORMATION
  Report Type: Spontaneous
  Country: IT (occurrence: IT)
  Receive Date: 20210929
  Receipt Date: 20210929
  Transmission Date: 20211014
  Serious: Yes (Life-Threatening, Other)
  Sender: FDA-Public Use
  Company Number: IT-PFIZER INC-202101210706

PATIENT
  Age: 23 Year
  Sex: Male

DRUGS (2)
  1. IFOSFAMIDE. [Suspect]
     Active Substance: IFOSFAMIDE
     Indication: INFLAMMATORY MYOFIBROBLASTIC TUMOUR
     Dosage: UNK UNK, CYCLIC
     Dates: start: 201903, end: 2019
  2. DOXORUBICIN HCL [Suspect]
     Active Substance: DOXORUBICIN HYDROCHLORIDE
     Indication: INFLAMMATORY MYOFIBROBLASTIC TUMOUR
     Dosage: UNK, CYCLIC
     Dates: start: 201903, end: 2019

REACTIONS (3)
  - Neutropenia [Unknown]
  - Drug intolerance [Unknown]
  - Haematotoxicity [Unknown]

NARRATIVE: CASE EVENT DATE: 2019
